FAERS Safety Report 24254742 (Version 1)
Quarter: 2024Q3

REPORT INFORMATION
  Report Type: Spontaneous
  Country: CN (occurrence: None)
  Receive Date: 20240827
  Receipt Date: 20240827
  Transmission Date: 20241017
  Serious: Yes (Other)
  Sender: ASTRAZENECA
  Company Number: 2024A190659

PATIENT
  Age: 72 Year
  Sex: Female
  Weight: 72 kg

DRUGS (3)
  1. DAPAGLIFLOZIN [Suspect]
     Active Substance: DAPAGLIFLOZIN
     Indication: Diabetes mellitus
     Route: 048
     Dates: start: 20200608, end: 20240809
  2. METFORMIN HYDROCHLORIDE [Concomitant]
     Active Substance: METFORMIN HYDROCHLORIDE
     Indication: Diabetes mellitus
     Dosage: 0.5 GR, THREE TIMES A DAY
     Route: 048
     Dates: start: 20200608, end: 20240409
  3. ACARBOSE [Concomitant]
     Active Substance: ACARBOSE
     Indication: Diabetes mellitus
     Dosage: 0.1GR THREE TIMES A DAY
     Route: 048
     Dates: start: 20220608, end: 20240409

REACTIONS (2)
  - Marasmus [Unknown]
  - Glucose urine present [Unknown]

NARRATIVE: CASE EVENT DATE: 20240419
